FAERS Safety Report 5461132-2 (Version None)
Quarter: 2007Q3

REPORT INFORMATION
  Report Type: 
  Country: None (occurrence: None)
  Receive Date: 20070920
  Receipt Date: 20070913
  Transmission Date: 20080115
  Serious: Yes (Hospitalization)
  Sender: FDA-Public Use
  Company Number: PHBS2007JP14086

PATIENT
  Age: 22 Year
  Sex: Female

DRUGS (10)
  1. TEGRETOL [Suspect]
     Indication: ELECTROENCEPHALOGRAM ABNORMAL
     Dosage: 600 MG/DAY
     Route: 048
  2. DIAZEPAM [Concomitant]
     Dosage: 10 MG/DAY
     Route: 054
  3. VALPROATE SODIUM [Concomitant]
     Dosage: 600 MG/DAY
     Route: 065
  4. CLOBAZAM [Concomitant]
     Dosage: 30 MG/DAY
     Route: 065
  5. CLOBAZAM [Concomitant]
     Dosage: 10 MG/DAY
     Route: 065
  6. ZONISAMIDE [Concomitant]
     Route: 065
  7. PHENYTOIN [Concomitant]
     Dosage: 200 MG/DAY
     Route: 065
  8. PHENYTOIN [Concomitant]
     Dosage: 225 MG/DAY
     Route: 065
  9. PHENOBARBITAL TAB [Concomitant]
     Dosage: 60 MG/DAY
     Route: 065
  10. PHENOBARBITAL TAB [Concomitant]
     Dosage: 120 MG/DAY
     Route: 065

REACTIONS (2)
  - MYOCLONUS [None]
  - SOMNOLENCE [None]
